FAERS Safety Report 5443732-9 (Version None)
Quarter: 2007Q3

REPORT INFORMATION
  Report Type: 
  Country: None (occurrence: None)
  Receive Date: 20070730
  Receipt Date: 20070418
  Transmission Date: 20080115
  Serious: Yes (Life-Threatening, Hospitalization)
  Sender: FDA-Public Use
  Company Number: 237389

PATIENT
  Age: 64 Year
  Sex: Male

DRUGS (4)
  1. RITUXAN [Suspect]
     Indication: NON-HODGKIN'S LYMPHOMA
     Dosage: 385 MG/M2, Q3W, INTRAVENOUS
     Route: 042
     Dates: start: 20060701
  2. CYTOXAN [Concomitant]
  3. VINCRISTINE SULFATE [Concomitant]
  4. PREDNISONE TAB [Concomitant]

REACTIONS (1)
  - PNEUMONITIS [None]
